FAERS Safety Report 18729172 (Version 1)
Quarter: 2021Q1

REPORT INFORMATION
  Report Type: Spontaneous
  Country: US (occurrence: US)
  Receive Date: 20210111
  Receipt Date: 20210111
  Transmission Date: 20210419
  Serious: Yes (Other)
  Sender: FDA-Public Use
  Company Number: None

PATIENT
  Age: 33 Year
  Sex: Male
  Weight: 121.5 kg

DRUGS (1)
  1. ABILIFY MAINTENA [Suspect]
     Active Substance: ARIPIPRAZOLE
     Indication: SCHIZOAFFECTIVE DISORDER
     Dosage: ?          QUANTITY:1 INJECTION(S);OTHER FREQUENCY:EVERY TWO WEEKS;?
     Route: 058

REACTIONS (7)
  - Memory impairment [None]
  - Hypersomnia [None]
  - Antisocial behaviour [None]
  - Obsessive-compulsive disorder [None]
  - Weight increased [None]
  - Somnolence [None]
  - Affective disorder [None]

NARRATIVE: CASE EVENT DATE: 20100113
